FAERS Safety Report 6185191-7 (Version None)
Quarter: 2009Q2

REPORT INFORMATION
  Report Type: 
  Country: None (occurrence: None)
  Receive Date: 20090511
  Receipt Date: 20090428
  Transmission Date: 20091009
  Serious: Yes (Hospitalization)
  Sender: FDA-Public Use
  Company Number: US-BIOGENIDEC-2005BI007525

PATIENT
  Age: 34 Year
  Sex: Male
  Weight: 63 kg

DRUGS (7)
  1. AVONEX [Suspect]
     Indication: MULTIPLE SCLEROSIS
     Route: 030
     Dates: start: 19960721
  2. AVONEX [Suspect]
     Route: 030
  3. AVONEX [Suspect]
     Route: 030
     Dates: end: 20050326
  4. AVONEX [Suspect]
     Route: 030
  5. DITROPAN [Concomitant]
     Indication: BLADDER DISORDER
     Dates: start: 19890101
  6. LIORESAL [Concomitant]
     Indication: MUSCLE TWITCHING
     Dates: start: 19890101
  7. LIORESAL [Concomitant]
     Indication: MUSCLE SPASMS
     Dates: start: 19890101

REACTIONS (4)
  - DEPRESSION [None]
  - GRAND MAL CONVULSION [None]
  - LOSS OF CONSCIOUSNESS [None]
  - LOSS OF CONTROL OF LEGS [None]
